FAERS Safety Report 20172671 (Version 1)
Quarter: 2021Q4

REPORT INFORMATION
  Report Type: Spontaneous
  Country: US (occurrence: US)
  Receive Date: 20211211
  Receipt Date: 20211211
  Transmission Date: 20220304
  Serious: No
  Sender: FDA-Public Use
  Company Number: US-JNJFOC-20211150993

PATIENT

DRUGS (1)
  1. MOTRIN IB [Suspect]
     Active Substance: IBUPROFEN
     Indication: Product used for unknown indication
     Route: 065

REACTIONS (7)
  - Dry mouth [Unknown]
  - Feeling abnormal [Unknown]
  - Pallor [Unknown]
  - Chest pain [Unknown]
  - Lip swelling [Unknown]
  - Asthenia [Unknown]
  - Dizziness [Unknown]
